FAERS Safety Report 14953527 (Version 4)
Quarter: 2018Q3

REPORT INFORMATION
  Report Type: Spontaneous
  Country: CA (occurrence: CA)
  Receive Date: 20180530
  Receipt Date: 20180703
  Transmission Date: 20181010
  Serious: Yes (Other)
  Sender: FDA-Public Use
  Company Number: CA-CELLTRION INC.-2018CA020035

PATIENT

DRUGS (5)
  1. INFLECTRA [Suspect]
     Active Substance: INFLIXIMAB-DYYB
     Indication: RHEUMATOID ARTHRITIS
     Dosage: 345 MG, (3MG/KG) EVERY 0,2,6, WEEKS THEN EVERY 8WEEKS
     Route: 042
  2. INFLECTRA [Suspect]
     Active Substance: INFLIXIMAB-DYYB
     Dosage: 400 MG, CYCLIC (EVERY 2,6, WEEKS THEN EVERY8WEEKS); INTRAVENOUS
     Route: 042
     Dates: start: 20180510
  3. ENBREL [Concomitant]
     Active Substance: ETANERCEPT
     Dosage: UNK
  4. INFLECTRA [Suspect]
     Active Substance: INFLIXIMAB-DYYB
     Dosage: 345 MG,  EVERY 0,2,6, WEEKS THEN EVERY 8WEEKS
     Route: 042
     Dates: start: 20180510
  5. METHOTREXATE. [Concomitant]
     Active Substance: METHOTREXATE
     Dosage: UNK

REACTIONS (6)
  - Product use issue [Unknown]
  - Pulmonary haemorrhage [Unknown]
  - Lung infection [Unknown]
  - Blood pressure fluctuation [Unknown]
  - Pain [Unknown]
  - Neoplasm malignant [Unknown]

NARRATIVE: CASE EVENT DATE: 201805
